FAERS Safety Report 18851527 (Version 1)
Quarter: 2021Q1

REPORT INFORMATION
  Report Type: Spontaneous
  Country: US (occurrence: US)
  Receive Date: 20210205
  Receipt Date: 20210205
  Transmission Date: 20210420
  Serious: No
  Sender: FDA-Public Use
  Company Number: US-ANTARES PHARMA, INC.-2020-SPO-SU-0596

PATIENT
  Age: 79 Year
  Sex: Female

DRUGS (1)
  1. SUMATRIPTAN. [Suspect]
     Active Substance: SUMATRIPTAN
     Indication: PROCEDURAL HEADACHE
     Dosage: 6 MG, UNKNOWN
     Route: 058

REACTIONS (1)
  - Product dose omission issue [Unknown]
